FAERS Safety Report 6890322-7 (Version None)
Quarter: 2010Q3

REPORT INFORMATION
  Report Type: 
  Country: None (occurrence: None)
  Receive Date: 20100730
  Receipt Date: 20081105
  Transmission Date: 20110219
  Serious: No
  Sender: FDA-Public Use
  Company Number: US-PFIZER INC-2008081668

PATIENT
  Sex: Female
  Weight: 125.45 kg

DRUGS (5)
  1. LIPITOR [Suspect]
     Indication: BLOOD CHOLESTEROL INCREASED
     Dates: end: 20080201
  2. NIASPAN [Suspect]
     Indication: BLOOD CHOLESTEROL INCREASED
     Dates: start: 20080101, end: 20080101
  3. CLARITIN [Concomitant]
  4. CALCIUM [Concomitant]
  5. OTHER ANALGESICS AND ANTIPYRETICS [Concomitant]

REACTIONS (5)
  - BLOOD CHOLESTEROL INCREASED [None]
  - DRUG INTOLERANCE [None]
  - DYSGEUSIA [None]
  - RASH [None]
  - TONGUE DISORDER [None]
